FAERS Safety Report 9359413 (Version 1)
Quarter: 2013Q2

REPORT INFORMATION
  Report Type: Spontaneous
  Country: BR (occurrence: BR)
  Receive Date: 20130620
  Receipt Date: 20130620
  Transmission Date: 20140414
  Serious: Yes (Other)
  Sender: FDA-Public Use
  Company Number: BR-PFIZER INC-2013180769

PATIENT
  Age: 79 Year
  Sex: Female
  Weight: 63 kg

DRUGS (6)
  1. XALATAN [Suspect]
     Dosage: 1 DROP IN EACH EYE 1X/DAY
     Route: 047
     Dates: start: 2008
  2. ADALAT [Concomitant]
     Indication: CARDIAC DISORDER
     Dosage: 1 TABLET DAILY
     Dates: start: 2007
  3. ADALAT [Concomitant]
     Indication: BLOOD PRESSURE
  4. CORUS [Concomitant]
     Indication: BLOOD PRESSURE
     Dosage: 1 TABLET, 1X/DAY
     Dates: start: 2007
  5. PANTOPRAZOLE [Concomitant]
     Indication: PROPHYLAXIS
     Dosage: 1 TABLET DAILY
     Dates: start: 2009
  6. SELOZOK [Concomitant]
     Indication: CARDIAC DISORDER
     Dosage: 1 TABLET DAILY
     Dates: start: 2007

REACTIONS (5)
  - Intraocular pressure test abnormal [Unknown]
  - Eye pain [Unknown]
  - Headache [Unknown]
  - Eye irritation [Unknown]
  - Irritability [Unknown]
